FAERS Safety Report 7709188-8 (Version None)
Quarter: 2011Q3

REPORT INFORMATION
  Report Type: 
  Country: None (occurrence: None)
  Receive Date: 20110825
  Receipt Date: 20110815
  Transmission Date: 20111222
  Serious: Yes (Other)
  Sender: FDA-Public Use
  Company Number: US-ROCHE-798030

PATIENT
  Sex: Female

DRUGS (3)
  1. DENOSUMAB [Concomitant]
  2. CAPECITABINE [Suspect]
     Route: 048
     Dates: start: 20110307
  3. AVASTIN [Concomitant]

REACTIONS (3)
  - PALMAR-PLANTAR ERYTHRODYSAESTHESIA SYNDROME [None]
  - ACTIVITIES OF DAILY LIVING IMPAIRED [None]
  - PAIN [None]
